FAERS Safety Report 18390694 (Version 1)
Quarter: 2020Q4

REPORT INFORMATION
  Report Type: Report from Study
  Country: US (occurrence: US)
  Receive Date: 20201016
  Receipt Date: 20201016
  Transmission Date: 20210114
  Serious: Yes (Other)
  Sender: FDA-Public Use
  Company Number: US-TAIHO ONCOLOGY  INC-EU-2020-03712

PATIENT
  Sex: Male

DRUGS (6)
  1. ATIVAN [Concomitant]
     Active Substance: LORAZEPAM
  2. MORPHINE [Concomitant]
     Active Substance: MORPHINE
  3. FIBER [Concomitant]
     Active Substance: PSYLLIUM HUSK
  4. LISINOPRIL. [Concomitant]
     Active Substance: LISINOPRIL
  5. LONSURF [Suspect]
     Active Substance: TIPIRACIL HYDROCHLORIDE\TRIFLURIDINE
     Indication: RECTAL CANCER
     Dosage: CYCLE UNKNOWN
     Route: 048
     Dates: start: 20200619
  6. CARVEDILOL. [Concomitant]
     Active Substance: CARVEDILOL

REACTIONS (1)
  - Bone cancer [Not Recovered/Not Resolved]

NARRATIVE: CASE EVENT DATE: 2020
